FAERS Safety Report 17563196 (Version 8)
Quarter: 2020Q2

REPORT INFORMATION
  Report Type: Report from Study
  Country: RU (occurrence: RU)
  Receive Date: 20200319
  Receipt Date: 20200512
  Transmission Date: 20200713
  Serious: Yes (Death, Life-Threatening, Hospitalization, Disabling, Other)
  Sender: FDA-Public Use
  Company Number: RU-BRISTOL-MYERS SQUIBB COMPANY-BMS-2020-005078

PATIENT
  Age: 67 Year
  Sex: Female
  Weight: 65 kg

DRUGS (6)
  1. NIVOLUMAB [Suspect]
     Active Substance: NIVOLUMAB
     Indication: BLADDER CANCER
     Dosage: 360 MILLIGRAM
     Route: 042
     Dates: start: 20191111, end: 20200121
  2. GEMCITABINE HYDROCHLORIDE. [Suspect]
     Active Substance: GEMCITABINE HYDROCHLORIDE
     Indication: BLADDER CANCER
     Dosage: 1700 MILLIGRAM
     Route: 065
     Dates: start: 20191111, end: 20200128
  3. LINRODOSTAT MESYLATE [Suspect]
     Active Substance: LINRODOSTAT MESYLATE
     Indication: BLADDER CANCER
     Dosage: 1 DOSAGE FORM
     Route: 048
     Dates: start: 20191111, end: 20200210
  4. LISINOPRILUM [Concomitant]
     Indication: PRODUCT USED FOR UNKNOWN INDICATION
     Dosage: 10 MILLIGRAM
     Route: 048
     Dates: start: 20190101
  5. CISPLATIN. [Suspect]
     Active Substance: CISPLATIN
     Indication: BLADDER CANCER
     Dosage: 120 MILLIGRAM
     Route: 065
     Dates: start: 20191111, end: 20200121
  6. TERLIPRESSIN [Concomitant]
     Active Substance: TERLIPRESSIN
     Indication: PRODUCT USED FOR UNKNOWN INDICATION
     Dosage: 3 MILLIGRAM
     Route: 042
     Dates: start: 20200307

REACTIONS (4)
  - Clinical death [Recovered/Resolved with Sequelae]
  - Brain oedema [Not Recovered/Not Resolved]
  - Procedural haemorrhage [Recovered/Resolved with Sequelae]
  - Thrombotic stroke [Fatal]

NARRATIVE: CASE EVENT DATE: 20200307
